FAERS Safety Report 22143822 (Version 1)
Quarter: 2023Q1

REPORT INFORMATION
  Report Type: Spontaneous
  Country: US (occurrence: US)
  Receive Date: 20230327
  Receipt Date: 20230327
  Transmission Date: 20230417
  Serious: No
  Sender: FDA-Public Use
  Company Number: US-BRISTOL-MYERS SQUIBB COMPANY-2023-042100

PATIENT
  Age: 95 Year
  Sex: Male

DRUGS (1)
  1. ELIQUIS [Suspect]
     Active Substance: APIXABAN
     Indication: Atrial flutter
     Route: 048
     Dates: start: 202303

REACTIONS (2)
  - Swelling [Unknown]
  - Wound haemorrhage [Unknown]

NARRATIVE: CASE EVENT DATE: 20230301
